FAERS Safety Report 7179794-0 (Version None)
Quarter: 2010Q4

REPORT INFORMATION
  Report Type: 
  Country: None (occurrence: None)
  Receive Date: 20101221
  Receipt Date: 20101210
  Transmission Date: 20110411
  Serious: Yes (Hospitalization, Other)
  Sender: FDA-Public Use
  Company Number: FR-JNJFOC-20101204295

PATIENT
  Age: 64 Year
  Sex: Male
  Weight: 87 kg

DRUGS (3)
  1. HALDOL [Suspect]
     Indication: PRODUCT USED FOR UNKNOWN INDICATION
     Route: 048
     Dates: start: 20101027, end: 20101105
  2. HALDOL [Suspect]
     Route: 048
     Dates: start: 20101027, end: 20101105
  3. HALDOL [Suspect]
     Dosage: 10 MG-10 MG-15 MG
     Route: 048
     Dates: start: 20101027, end: 20101105

REACTIONS (4)
  - AGITATION [None]
  - CONFUSIONAL STATE [None]
  - DISORIENTATION [None]
  - EXTRAPYRAMIDAL DISORDER [None]
